FAERS Safety Report 5393397-X (Version None)
Quarter: 2007Q3

REPORT INFORMATION
  Report Type: 
  Country: None (occurrence: None)
  Receive Date: 20070717
  Receipt Date: 20070717
  Transmission Date: 20080115
  Serious: Yes (Hospitalization)
  Sender: FDA-Public Use
  Company Number: None

PATIENT
  Sex: Female
  Weight: 60 kg

DRUGS (10)
  1. CYCLOPHOSPHAMIDE [Suspect]
     Dosage: 1222 MG
  2. DOXORUBICIN HYDROCHLORIDE [Suspect]
     Dosage: 82 MG
  3. ETOPOSIDE [Suspect]
     Dosage: 0 MG
  4. RITUXIMAB (MOAB 2CB8 ANTI CD20, CHIMERIC) [Suspect]
     Dosage: 611 MG
  5. VINCRISTINE SULFATE [Suspect]
     Dosage: 2 MG
  6. CALCIUM ACETATE [Concomitant]
  7. DOCUSATE [Concomitant]
  8. ENOXAPARIN SODIUM [Concomitant]
  9. FERROUS SULFATE [Concomitant]
  10. MULTIVITAMIN WITH MINERALS [Concomitant]

REACTIONS (2)
  - BLOOD LACTATE DEHYDROGENASE INCREASED [None]
  - BLOOD URIC ACID INCREASED [None]
